FAERS Safety Report 7966503-8 (Version None)
Quarter: 2011Q4

REPORT INFORMATION
  Report Type: 
  Country: None (occurrence: None)
  Receive Date: 20111208
  Receipt Date: 20111201
  Transmission Date: 20120403
  Serious: Yes (Hospitalization, Disabling)
  Sender: FDA-Public Use
  Company Number: US-MERCK-1104USA02654

PATIENT
  Age: 49 Year
  Sex: Female

DRUGS (4)
  1. FOSAMAX PLUS D [Suspect]
     Indication: OSTEOPOROSIS
     Route: 048
     Dates: start: 20060123, end: 20100501
  2. FOSAMAX [Suspect]
     Indication: OSTEOPOROSIS
     Route: 048
     Dates: start: 19980409, end: 20100101
  3. FOSAMAX [Suspect]
     Indication: OSTEOPENIA
     Route: 048
     Dates: start: 19980409, end: 20100101
  4. FOSAMAX PLUS D [Suspect]
     Indication: OSTEOPENIA
     Route: 048
     Dates: start: 20060123, end: 20100501

REACTIONS (17)
  - FEMUR FRACTURE [None]
  - GAIT DISTURBANCE [None]
  - FALL [None]
  - HYPERTENSION [None]
  - SPINAL OSTEOARTHRITIS [None]
  - PALPITATIONS [None]
  - ANAEMIA POSTOPERATIVE [None]
  - OSTEOARTHRITIS [None]
  - HAEMORRHOIDS [None]
  - DEPRESSION [None]
  - LIGAMENT DISORDER [None]
  - PERIPROSTHETIC FRACTURE [None]
  - BREAST CALCIFICATIONS [None]
  - WHITE BLOOD CELL COUNT INCREASED [None]
  - TOOTH DISORDER [None]
  - HIP FRACTURE [None]
  - ARTHROPATHY [None]
